FAERS Safety Report 14091893 (Version 2)
Quarter: 2023Q2

REPORT INFORMATION
  Report Type: Spontaneous
  Country: US (occurrence: US)
  Receive Date: 20171016
  Receipt Date: 20230421
  Transmission Date: 20230721
  Serious: Yes (Life-Threatening, Hospitalization, Other)
  Sender: FDA-Public Use
  Company Number: US-AUROBINDO-AUR-APL-2017-41659

PATIENT
  Age: 68 Year
  Sex: Female

DRUGS (9)
  1. METHYLPREDNISOLONE [Suspect]
     Active Substance: METHYLPREDNISOLONE
     Indication: Immunosuppression
     Dosage: 200 MILLIGRAM
     Route: 065
  2. TIGECYCLINE [Suspect]
     Active Substance: TIGECYCLINE
     Indication: Product used for unknown indication
     Dosage: UNK (100 MG, LOADING DOSE FOLLOWED BY 50MG EVERY 12H.)
     Route: 065
  3. AZATHIOPRINE [Suspect]
     Active Substance: AZATHIOPRINE
     Indication: Immunosuppression
     Dosage: 100 MILLIGRAM, ONCE A DAY
     Route: 065
  4. TACROLIMUS [Suspect]
     Active Substance: TACROLIMUS
     Indication: Immunosuppression
     Dosage: 2 MILLIGRAM, TWO TIMES A DAY
     Route: 065
  5. COLISTIN [Suspect]
     Active Substance: COLISTIN
     Indication: Product used for unknown indication
     Dosage: UNK
     Route: 065
  6. FOSFOMYCIN [Suspect]
     Active Substance: FOSFOMYCIN
     Indication: Product used for unknown indication
     Dosage: 8 MILLIGRAM
     Route: 042
  7. AMPICILLIN SODIUM\SULBACTAM SODIUM [Concomitant]
     Active Substance: AMPICILLIN SODIUM\SULBACTAM SODIUM
     Indication: Infection prophylaxis
     Dosage: 1.5 GRAM, FOUR TIMES/DAY
     Route: 065
  8. COTRIMOXAZOLE [Concomitant]
     Active Substance: SULFAMETHOXAZOLE\TRIMETHOPRIM
     Indication: Infection prophylaxis
     Dosage: UNK
     Route: 048
  9. ACYCLOVIR [Concomitant]
     Active Substance: ACYCLOVIR
     Indication: Infection prophylaxis
     Dosage: UNK
     Route: 048

REACTIONS (13)
  - Klebsiella infection [Recovered/Resolved]
  - Renal impairment [Recovering/Resolving]
  - Enterococcal infection [Recovered/Resolved]
  - Cytomegalovirus infection [Unknown]
  - Respiratory failure [Unknown]
  - Renal failure [Recovering/Resolving]
  - Pelvic abscess [Unknown]
  - Multiple-drug resistance [Unknown]
  - Hypotension [Unknown]
  - Leukocytosis [Recovering/Resolving]
  - Tachycardia [Unknown]
  - Condition aggravated [Unknown]
  - Liver function test abnormal [Recovered/Resolved]
